FAERS Safety Report 24901140 (Version 5)
Quarter: 2025Q3

REPORT INFORMATION
  Report Type: Report from Study
  Country: US (occurrence: US)
  Receive Date: 20250129
  Receipt Date: 20250814
  Transmission Date: 20251020
  Serious: Yes (Other)
  Sender: UCB
  Company Number: US-UCBSA-2025004637

PATIENT
  Age: 16 Year
  Sex: Male
  Weight: 66 kg

DRUGS (2)
  1. FINTEPLA [Suspect]
     Active Substance: FENFLURAMINE
     Indication: Seizure
     Dosage: 5.9 MILLILITER, 2X/DAY (BID)
     Dates: start: 20231117
  2. FINTEPLA [Suspect]
     Active Substance: FENFLURAMINE
     Indication: Severe myoclonic epilepsy of infancy

REACTIONS (3)
  - Mitral valve incompetence [Recovering/Resolving]
  - Tricuspid valve incompetence [Not Recovered/Not Resolved]
  - Pulmonary valve incompetence [Recovering/Resolving]

NARRATIVE: CASE EVENT DATE: 20250121
